FAERS Safety Report 12383465 (Version 3)
Quarter: 2016Q2

REPORT INFORMATION
  Report Type: Spontaneous
  Country: AU (occurrence: AU)
  Receive Date: 20160518
  Receipt Date: 20160623
  Transmission Date: 20160815
  Serious: Yes (Disabling)
  Sender: FDA-Public Use
  Company Number: AU-GILEAD-2016-0210989

PATIENT
  Age: 43 Year
  Sex: Female
  Weight: 79.6 kg

DRUGS (2)
  1. DACLATASVIR DIHYDROCHLORIDE [Suspect]
     Active Substance: DACLATASVIR DIHYDROCHLORIDE
     Indication: HEPATITIS C VIRUS TEST POSITIVE
     Dosage: 60 MG, QD
     Route: 065
     Dates: start: 20160414, end: 20160426
  2. SOVALDI [Suspect]
     Active Substance: SOFOSBUVIR
     Indication: HEPATITIS C VIRUS TEST POSITIVE
     Dosage: 400 MG, QD
     Route: 065
     Dates: start: 20160414, end: 20160426

REACTIONS (11)
  - Acute sinusitis [Unknown]
  - Disturbance in attention [Unknown]
  - Thirst [Unknown]
  - Vertigo [Recovered/Resolved]
  - Depression [Recovering/Resolving]
  - Anxiety [Recovering/Resolving]
  - Feeling abnormal [Not Recovered/Not Resolved]
  - Mental impairment [Recovering/Resolving]
  - Malaise [Not Recovered/Not Resolved]
  - Dry mouth [Unknown]
  - Memory impairment [Unknown]

NARRATIVE: CASE EVENT DATE: 201604
